FAERS Safety Report 7280910-0 (Version None)
Quarter: 2011Q1

REPORT INFORMATION
  Report Type: 
  Country: None (occurrence: None)
  Receive Date: 20110208
  Receipt Date: 20110201
  Transmission Date: 20110831
  Serious: Yes (Hospitalization)
  Sender: FDA-Public Use
  Company Number: US-ALEXION-A201100078

PATIENT
  Sex: Female

DRUGS (11)
  1. LISINOPRIL [Concomitant]
  2. SOLIRIS [Suspect]
     Indication: PAROXYSMAL NOCTURNAL HAEMOGLOBINURIA
     Dosage: UNK
     Route: 042
  3. LEXAPRO [Concomitant]
     Dosage: UNK
  4. AMIODARONE [Concomitant]
  5. ASPIRIN [Concomitant]
     Dosage: UNK
  6. IMDUR [Concomitant]
  7. LOPRESSOR [Concomitant]
     Dosage: UNK
  8. NORVASC [Concomitant]
  9. VICODIN [Concomitant]
     Dosage: UNK
  10. NITROSTAT [Concomitant]
     Dosage: UNK
  11. COUMADIN [Suspect]

REACTIONS (8)
  - HYPOKALAEMIA [None]
  - HYPOMAGNESAEMIA [None]
  - ATRIAL FIBRILLATION [None]
  - THROMBOCYTOPENIA [None]
  - CONDITION AGGRAVATED [None]
  - CHEST PAIN [None]
  - INTERNATIONAL NORMALISED RATIO DECREASED [None]
  - CARDIAC FAILURE CONGESTIVE [None]
